FAERS Safety Report 8812668 (Version 1)
Quarter: 2012Q4

REPORT INFORMATION
  Report Type: 
  Country: JP (occurrence: JP)
  Receive Date: 20120927
  Receipt Date: 20120927
  Transmission Date: 20130627
  Serious: Yes (Other)
  Sender: FDA-Public Use
  Company Number: PHHY2012JP083012

PATIENT
  Age: 67 Year
  Sex: Female

DRUGS (4)
  1. LAMOTRIGINE [Suspect]
     Indication: DEPRESSION
     Dosage: 25 mg, UNK
  2. RISPERIDONE [Interacting]
     Indication: BIPOLAR DISORDER
     Dosage: 5 mg, QD
  3. RISPERIDONE [Interacting]
     Dosage: 3 mg, QD
  4. BIPERIDEN [Concomitant]

REACTIONS (5)
  - Neuroleptic malignant syndrome [Recovered/Resolved]
  - Dyskinesia [Recovered/Resolved]
  - Hyperthermia [Recovered/Resolved]
  - Tachycardia [Recovered/Resolved]
  - Drug interaction [Recovered/Resolved]
